FAERS Safety Report 7335837-2 (Version None)
Quarter: 2011Q1

REPORT INFORMATION
  Report Type: 
  Country: None (occurrence: None)
  Receive Date: 20110307
  Receipt Date: 20110221
  Transmission Date: 20110831
  Serious: Yes (Other)
  Sender: FDA-Public Use
  Company Number: JP-MERCK-1102USA03169

PATIENT
  Age: 20 Year
  Sex: Male

DRUGS (3)
  1. SEROTONE [Concomitant]
     Route: 065
  2. DECADRON [Concomitant]
     Route: 065
  3. EMEND [Suspect]
     Route: 048

REACTIONS (2)
  - BLOOD CREATINE PHOSPHOKINASE INCREASED [None]
  - ASPARTATE AMINOTRANSFERASE INCREASED [None]
